FAERS Safety Report 7110165-9 (Version None)
Quarter: 2010Q4

REPORT INFORMATION
  Report Type: 
  Country: None (occurrence: None)
  Receive Date: 20101118
  Receipt Date: 20101103
  Transmission Date: 20110411
  Serious: Yes (Hospitalization)
  Sender: FDA-Public Use
  Company Number: PHFR2010GB03440

PATIENT
  Sex: Male

DRUGS (11)
  1. CLOZARIL [Suspect]
     Indication: SCHIZOPHRENIA
     Dosage: 150 MG AM, 500 MG PM
     Route: 048
     Dates: start: 20010305
  2. VALPROATE SODIUM [Concomitant]
  3. CITALOPRAM HYDROBROMIDE [Concomitant]
  4. DICLOFENAC SODIUM [Concomitant]
  5. PREDNISOLONE [Concomitant]
  6. ALENDRONIC ACID [Concomitant]
  7. ADCAL-D3 [Concomitant]
  8. SIMVASTATIN [Concomitant]
  9. OMEPRAZOLE [Concomitant]
  10. MULTI-VITAMINS [Concomitant]
  11. SULFASALAZINE [Concomitant]

REACTIONS (3)
  - EOSINOPHIL COUNT INCREASED [None]
  - EOSINOPHILIA [None]
  - WOUND INFECTION [None]
